FAERS Safety Report 12378074 (Version 1)
Quarter: 2016Q2

REPORT INFORMATION
  Report Type: Report from Study
  Country: US (occurrence: US)
  Receive Date: 20160517
  Receipt Date: 20160517
  Transmission Date: 20160815
  Serious: No
  Sender: FDA-Public Use
  Company Number: US-MALLINCKRODT-T201505575

PATIENT
  Age: 63 Year
  Sex: Female

DRUGS (3)
  1. REPOSITORY CORTICOTROPIN INJECTION [Suspect]
     Active Substance: CORTICOTROPIN
     Dosage: 80 UNITS WEEKLY ON FRIDAY (ON 3 WKS THEN OFF 1 WK)
     Route: 058
  2. REPOSITORY CORTICOTROPIN INJECTION [Suspect]
     Active Substance: CORTICOTROPIN
     Indication: RHEUMATOID ARTHRITIS
     Dosage: 80 UNITS PER DAY FOR 3 CONSECUTIVE WEEKS EVERY MONTH
     Route: 058
     Dates: start: 20150505
  3. GAMUNEX [Concomitant]
     Active Substance: HUMAN IMMUNOGLOBULIN G
     Dosage: TWO INJECTIONS PER WEEK (8MG ON WEDNESDAY AND 9 MG ON SATURDAY)

REACTIONS (6)
  - Vision blurred [Recovered/Resolved]
  - Injection site pruritus [Recovered/Resolved]
  - Abnormal sensation in eye [Recovered/Resolved]
  - Bone pain [Not Recovered/Not Resolved]
  - Fatigue [Not Recovered/Not Resolved]
  - Malaise [Recovered/Resolved]

NARRATIVE: CASE EVENT DATE: 20151113
